FAERS Safety Report 7313914-X (Version None)
Quarter: 2011Q1

REPORT INFORMATION
  Report Type: 
  Country: None (occurrence: None)
  Receive Date: 20110216
  Receipt Date: 20110216
  Transmission Date: 20110831
  Serious: Yes (Hospitalization)
  Sender: FDA-Public Use
  Company Number: None

PATIENT
  Sex: Female
  Weight: 65.73 kg

DRUGS (3)
  1. IDARUBICIN [Suspect]
     Dosage: 39.6 MG
  2. CYTARABINE [Suspect]
     Dosage: 4.95 G
  3. PRAVASTATIN SODIUM [Suspect]
     Dosage: 7680 MG

REACTIONS (3)
  - PYREXIA [None]
  - NEUTROPENIA [None]
  - HYPOTENSION [None]
